FAERS Safety Report 20127384 (Version 1)
Quarter: 2021Q4

REPORT INFORMATION
  Report Type: Spontaneous
  Country: US (occurrence: US)
  Receive Date: 20211129
  Receipt Date: 20211129
  Transmission Date: 20220303
  Serious: No
  Sender: FDA-Public Use
  Company Number: US-ANIPHARMA-2021-US-018370

PATIENT
  Sex: Female

DRUGS (1)
  1. VANCOMYCIN HYDROCHLORIDE [Suspect]
     Active Substance: VANCOMYCIN HYDROCHLORIDE
     Indication: Clostridium difficile infection
     Dosage: 125 MG FOR 10 DAYS, 250 MG FOR 10 DAYS AND CURRENTLY 125 MG 4 TIMES DAILY
     Route: 065
     Dates: start: 20210706

REACTIONS (1)
  - Drug ineffective [Unknown]
